FAERS Safety Report 6397831-8 (Version None)
Quarter: 2009Q4

REPORT INFORMATION
  Report Type: 
  Country: None (occurrence: None)
  Receive Date: 20091012
  Receipt Date: 20090930
  Transmission Date: 20100525
  Serious: Yes (Other)
  Sender: FDA-Public Use
  Company Number: DE-JNJFOC-20091000678

PATIENT
  Sex: Female

DRUGS (3)
  1. INFLIXIMAB [Suspect]
     Dosage: 18 MONTHS AFTER INDUCTION REGIMEN
     Route: 042
  2. INFLIXIMAB [Suspect]
     Indication: LUPUS NEPHRITIS
     Dosage: 4X/1.2G (APPROXIMATELY 5MG/KG)  WEEKS 0, 2, 6 AND 10.
     Route: 042
  3. AZATHIOPRINE [Concomitant]

REACTIONS (7)
  - BACK PAIN [None]
  - DRUG INEFFECTIVE [None]
  - INFUSION RELATED REACTION [None]
  - LUPUS NEPHRITIS [None]
  - RENAL CANCER [None]
  - URINARY TRACT INFECTION [None]
  - URTICARIA [None]
